FAERS Safety Report 25320092 (Version 1)
Quarter: 2025Q2

REPORT INFORMATION
  Report Type: Spontaneous
  Country: TW (occurrence: TW)
  Receive Date: 20250515
  Receipt Date: 20250515
  Transmission Date: 20250716
  Serious: Yes (Other)
  Sender: NOVARTIS
  Company Number: TW-002147023-NVSC2025TW075642

PATIENT
  Age: 76 Year
  Sex: Female
  Weight: 57.5 kg

DRUGS (8)
  1. DIOVAN [Suspect]
     Active Substance: VALSARTAN
     Indication: Hypertension
     Dosage: 160 MG, QD
     Route: 048
     Dates: start: 20250319, end: 20250409
  2. VANCOMYCIN HYDROCHLORIDE [Suspect]
     Active Substance: VANCOMYCIN HYDROCHLORIDE
     Indication: Intervertebral discitis
     Dosage: 500 MG, BID (DRIP) (LYOPHILIZED INJECTION)
     Route: 042
     Dates: end: 20250404
  3. METRONIDAZOLE [Concomitant]
     Active Substance: METRONIDAZOLE
     Indication: Meningitis
     Dosage: 500 MG, Q6H (SABS INJECTION) (DRIP)
     Route: 042
  4. INSULIN NOS [Concomitant]
     Active Substance: INSULIN NOS
     Indication: Diabetes mellitus
     Dosage: UNK (20.0U) (GLARGINE) (TOUJEO)
     Route: 058
  5. CEFTAZIDIME [Concomitant]
     Active Substance: CEFTAZIDIME
     Indication: Intervertebral discitis
     Dosage: 2000 MG, Q8H (TATUMCEF POWDER)
     Route: 042
  6. AMLODIPINE BESYLATE [Concomitant]
     Active Substance: AMLODIPINE BESYLATE
     Indication: Hypertension
     Dosage: 6.94 MG, QD (NORVASC)
     Route: 048
  7. QUETIAPINE [Concomitant]
     Active Substance: QUETIAPINE
     Indication: Delirium
     Dosage: 25 MG, QD (SEROQUEL)
     Route: 048
  8. TRAMADOL [Concomitant]
     Active Substance: TRAMADOL
     Indication: Pain
     Dosage: 100 MG, BID (MUACTION SUSTAINED RELEASE TABLET) (LOTUS)
     Route: 048

REACTIONS (3)
  - Vancomycin infusion reaction [Recovered/Resolved]
  - Eosinophilia [Recovered/Resolved]
  - Rash [Recovered/Resolved]

NARRATIVE: CASE EVENT DATE: 20250331
